FAERS Safety Report 4824292-X (Version None)
Quarter: 2005Q4

REPORT INFORMATION
  Report Type: 
  Country: None (occurrence: None)
  Receive Date: 20051109
  Receipt Date: 20050725
  Transmission Date: 20060501
  Serious: Yes (Hospitalization)
  Sender: FDA-Public Use
  Company Number: US-MERCK-0507USA03994

PATIENT
  Age: 65 Year
  Sex: Male
  Weight: 102 kg

DRUGS (13)
  1. PAXIL [Concomitant]
     Route: 065
     Dates: start: 20030601
  2. VIOXX [Suspect]
     Indication: BONE PAIN
     Route: 048
     Dates: start: 19990101, end: 20031001
  3. VIOXX [Suspect]
     Indication: INTERVERTEBRAL DISC PROTRUSION
     Route: 048
     Dates: start: 19990101, end: 20031001
  4. PRILOSEC [Concomitant]
     Route: 065
  5. DARVOCET-N 100 [Concomitant]
     Indication: PAIN
     Route: 065
  6. TYLENOL W/ CODEINE NO. 3 [Concomitant]
     Route: 065
  7. LORAZEPAM [Concomitant]
     Route: 065
  8. LIBRAX CAPSULES [Concomitant]
     Route: 065
  9. NEURONTIN [Concomitant]
     Route: 065
  10. DURAGESIC-100 [Concomitant]
     Route: 065
  11. AMITRIPTYLINE HYDROCHLORIDE [Concomitant]
     Route: 065
  12. AMBIEN [Concomitant]
     Route: 065
  13. VITAMIN SOURCE GLUCOSAMINE CHONDROITIN MSM [Concomitant]
     Route: 065

REACTIONS (24)
  - ACUTE MYOCARDIAL INFARCTION [None]
  - ANXIETY [None]
  - BRONCHOSPASM [None]
  - CHEST PAIN [None]
  - CORONARY ARTERY DISEASE [None]
  - CORONARY ARTERY RESTENOSIS [None]
  - DEPRESSION [None]
  - DIARRHOEA [None]
  - DYSPNOEA [None]
  - EMPHYSEMA [None]
  - GASTROOESOPHAGEAL REFLUX DISEASE [None]
  - HIATUS HERNIA [None]
  - HIGH DENSITY LIPOPROTEIN DECREASED [None]
  - HYPERCHOLESTEROLAEMIA [None]
  - HYPERGLYCAEMIA [None]
  - HYPOTENSION [None]
  - INSOMNIA [None]
  - IRRITABLE BOWEL SYNDROME [None]
  - RENAL FAILURE CHRONIC [None]
  - RHINITIS ALLERGIC [None]
  - SEBORRHOEIC KERATOSIS [None]
  - SKIN LESION [None]
  - STENT OCCLUSION [None]
  - URINE FLOW DECREASED [None]
